FAERS Safety Report 7600142-3 (Version None)
Quarter: 2011Q3

REPORT INFORMATION
  Report Type: 
  Country: None (occurrence: None)
  Receive Date: 20110711
  Receipt Date: 20110701
  Transmission Date: 20111222
  Serious: Yes (Other)
  Sender: FDA-Public Use
  Company Number: ES-JNJFOC-20110700599

PATIENT
  Sex: Female
  Weight: 25 kg

DRUGS (4)
  1. EUTHYROX [Concomitant]
     Indication: HYPOTHYROIDISM
     Dosage: 1.5 TABLET ONCE A DAY
     Route: 065
  2. CONCERTA [Suspect]
     Indication: ATTENTION DEFICIT/HYPERACTIVITY DISORDER
     Route: 048
     Dates: end: 20110630
  3. CONCERTA [Suspect]
     Route: 048
     Dates: start: 20101201
  4. CONCERTA [Suspect]
     Route: 048

REACTIONS (7)
  - DECREASED APPETITE [None]
  - APATHY [None]
  - WEIGHT DECREASED [None]
  - NERVOUSNESS [None]
  - DEPRESSION [None]
  - AGITATION [None]
  - IRRITABILITY [None]
